FAERS Safety Report 8798986 (Version 6)
Quarter: 2012Q4

REPORT INFORMATION
  Report Type: 
  Country: US (occurrence: US)
  Receive Date: 20120920
  Receipt Date: 20121227
  Transmission Date: 20130627
  Serious: Yes (Other)
  Sender: FDA-Public Use
  Company Number: US-009507513-1209USA001860

PATIENT
  Sex: Female

DRUGS (4)
  1. PEGINTRON [Suspect]
     Indication: HEPATITIS C
     Dosage: 0.5 UNK, UNK
     Dates: start: 20120831
  2. PEGINTRON [Suspect]
     Dosage: 0.4 UNK, UNK
     Dates: start: 20120911, end: 20121130
  3. RIBAVIRIN [Suspect]
     Indication: HEPATITIS C
     Dosage: Dose reduced to 2 pills twice a day from 3 pills twice a day
     Dates: start: 20120831, end: 20121130
  4. TELAPREVIR [Suspect]
     Indication: HEPATITIS C
     Dosage: UNK
     Dates: start: 20120831, end: 20121130

REACTIONS (71)
  - Rectal haemorrhage [Unknown]
  - Fluid replacement [Unknown]
  - Pain of skin [Unknown]
  - Sunburn [Unknown]
  - Bone pain [Unknown]
  - Application site pain [Unknown]
  - Gastric dilatation [Unknown]
  - Dry eye [Unknown]
  - Skin tightness [Unknown]
  - Muscle spasms [Unknown]
  - Pain in extremity [Unknown]
  - Pain in extremity [Unknown]
  - Back pain [Unknown]
  - Pyrexia [Unknown]
  - Abdominal pain upper [Unknown]
  - White blood cell count decreased [Unknown]
  - Chest discomfort [Unknown]
  - Dysgeusia [Unknown]
  - Oropharyngeal pain [Unknown]
  - Abnormal sensation in eye [Unknown]
  - Red blood cell count decreased [Unknown]
  - White blood cell count decreased [Unknown]
  - Dyspnoea [Unknown]
  - Dyspnoea [Unknown]
  - Chest discomfort [Unknown]
  - Nausea [Unknown]
  - Headache [Unknown]
  - Asthenia [Unknown]
  - White blood cell count decreased [Unknown]
  - Malaise [Unknown]
  - Dyspnoea [Unknown]
  - Drug administered at inappropriate site [Unknown]
  - White blood cell count decreased [Unknown]
  - Back pain [Unknown]
  - Pain [Unknown]
  - Muscle spasms [Unknown]
  - Dry skin [Unknown]
  - Pruritus [Unknown]
  - White blood cell count decreased [Unknown]
  - Dry skin [Unknown]
  - Dehydration [Unknown]
  - Fatigue [Unknown]
  - Depression [Recovering/Resolving]
  - Dry mouth [Unknown]
  - Oral pain [Unknown]
  - Gastrointestinal disorder [Unknown]
  - Haemorrhage [Unknown]
  - Angiopathy [Unknown]
  - Eye infection [Unknown]
  - Pruritus [Unknown]
  - Diarrhoea [Unknown]
  - Back pain [Unknown]
  - Memory impairment [Unknown]
  - Pain [Unknown]
  - Hypoaesthesia [Unknown]
  - Insomnia [Unknown]
  - Oropharyngeal pain [Unknown]
  - Musculoskeletal disorder [Unknown]
  - Dyspnoea [Unknown]
  - Gait disturbance [Unknown]
  - Disturbance in attention [Unknown]
  - Malaise [Unknown]
  - Feeling abnormal [Unknown]
  - Leukopenia [Unknown]
  - Anxiety [Unknown]
  - Dermatitis [Unknown]
  - Drug ineffective [Unknown]
  - Anaemia [Unknown]
  - Anaemia [Unknown]
  - Drug ineffective [Unknown]
  - Hypersensitivity [Unknown]
